FAERS Safety Report 9648578 (Version 1)
Quarter: 2013Q4

REPORT INFORMATION
  Report Type: Spontaneous
  Country: US (occurrence: None)
  Receive Date: 20131025
  Receipt Date: 20131025
  Transmission Date: 20140711
  Serious: Yes (Life-Threatening, Disabling)
  Sender: FDA-Public Use
  Company Number: None

PATIENT
  Age: 35 Year
  Sex: Female
  Weight: 85.28 kg

DRUGS (2)
  1. CYMBALTA [Suspect]
     Indication: DEPRESSION
     Dosage: 2 PILLS ONCE DAILY
     Route: 048
     Dates: start: 20130101, end: 20131024
  2. CYMBALTA [Suspect]
     Indication: BACK PAIN
     Dosage: 2 PILLS ONCE DAILY
     Route: 048
     Dates: start: 20130101, end: 20131024

REACTIONS (3)
  - Impaired work ability [None]
  - Drug withdrawal syndrome [None]
  - Activities of daily living impaired [None]
